FAERS Safety Report 8014418-1 (Version None)
Quarter: 2011Q4

REPORT INFORMATION
  Report Type: 
  Country: None (occurrence: None)
  Receive Date: 20111229
  Receipt Date: 20111221
  Transmission Date: 20120403
  Serious: Yes (Congenital Anomaly, Other)
  Sender: FDA-Public Use
  Company Number: PHHY2011DK112380

PATIENT

DRUGS (1)
  1. LEVETIRACETAM [Suspect]
     Route: 064

REACTIONS (2)
  - CONGENITAL CYST [None]
  - FOETAL EXPOSURE DURING PREGNANCY [None]
